FAERS Safety Report 9432180 (Version 1)
Quarter: 2013Q3

REPORT INFORMATION
  Report Type: Spontaneous
  Country: US (occurrence: US)
  Receive Date: 20130731
  Receipt Date: 20130731
  Transmission Date: 20140515
  Serious: No
  Sender: FDA-Public Use
  Company Number: US-TARO-2012P1065374

PATIENT
  Age: 65 Year
  Sex: Female

DRUGS (1)
  1. DESOXIMETASONE [Suspect]
     Dates: start: 201209

REACTIONS (5)
  - Application site erythema [Unknown]
  - Application site irritation [Unknown]
  - Application site pain [Unknown]
  - Pain [Unknown]
  - Application site swelling [Unknown]
